FAERS Safety Report 6396520-3 (Version None)
Quarter: 2009Q4

REPORT INFORMATION
  Report Type: 
  Country: None (occurrence: None)
  Receive Date: 20091008
  Receipt Date: 20091008
  Transmission Date: 20100525
  Serious: Yes (Other)
  Sender: FDA-Public Use
  Company Number: None

PATIENT
  Age: 1 Day
  Sex: Male
  Weight: 3.5 kg

DRUGS (2)
  1. GENTAMICIN [Suspect]
     Indication: OPHTHALMIA NEONATORUM
     Dosage: RIBBON OF OINTMENT ONCE -AT BIRTH- OPHTHALMIC
     Route: 047
     Dates: start: 20091003, end: 20091003
  2. GENTAMICIN [Suspect]
     Indication: PROPHYLAXIS
     Dosage: RIBBON OF OINTMENT ONCE -AT BIRTH- OPHTHALMIC
     Route: 047
     Dates: start: 20091003, end: 20091003

REACTIONS (4)
  - BLISTER [None]
  - DERMATITIS [None]
  - PERIORBITAL OEDEMA [None]
  - ULCER [None]
